FAERS Safety Report 9985234 (Version 2)
Quarter: 2015Q1

REPORT INFORMATION
  Report Type: Report from Study
  Country: US (occurrence: US)
  Receive Date: 20140307
  Receipt Date: 20150216
  Transmission Date: 20150721
  Serious: No
  Sender: FDA-Public Use
  Company Number: US-ABBVIE-13P-163-1184984-00

PATIENT
  Age: 35 Year
  Sex: Female

DRUGS (5)
  1. PROTONIX [Concomitant]
     Active Substance: PANTOPRAZOLE SODIUM
     Indication: GASTROOESOPHAGEAL REFLUX DISEASE
  2. HUMIRA [Suspect]
     Active Substance: ADALIMUMAB
     Indication: PSORIASIS
     Dates: start: 20130904, end: 20131218
  3. CONTRACEPTIVES [Concomitant]
     Active Substance: UNSPECIFIED INGREDIENT
     Indication: CONTRACEPTION
     Dosage: PILLS
  4. NABUMETONE. [Concomitant]
     Active Substance: NABUMETONE
     Indication: SPINAL OSTEOARTHRITIS
     Dates: start: 20140303
  5. NABUMETONE. [Concomitant]
     Active Substance: NABUMETONE
     Indication: SPONDYLITIS

REACTIONS (6)
  - Cellulitis [Recovered/Resolved]
  - Lymphoedema [Unknown]
  - Psoriasis [Not Recovered/Not Resolved]
  - Furuncle [Unknown]
  - Hypertonic bladder [Not Recovered/Not Resolved]
  - Drug ineffective [Unknown]

NARRATIVE: CASE EVENT DATE: 20130904
